FAERS Safety Report 6762406-5 (Version None)
Quarter: 2010Q2

REPORT INFORMATION
  Report Type: 
  Country: None (occurrence: None)
  Receive Date: 20100609
  Receipt Date: 20100602
  Transmission Date: 20101027
  Serious: Yes (Hospitalization)
  Sender: FDA-Public Use
  Company Number: JP-ROCHE-703428

PATIENT
  Sex: Female
  Weight: 55 kg

DRUGS (6)
  1. ACTEMRA [Suspect]
     Indication: RHEUMATOID ARTHRITIS
     Route: 041
     Dates: start: 20091118, end: 20100409
  2. AZULFIDINE [Concomitant]
     Dosage: DOSE FORM: ENTERIC COATING DRUG
     Route: 048
     Dates: start: 20071119
  3. RIMATIL [Concomitant]
     Route: 048
     Dates: start: 20080711
  4. PREDONINE [Concomitant]
     Route: 048
     Dates: start: 20080711
  5. LOXONIN [Concomitant]
     Route: 048
     Dates: start: 20091023
  6. MUCOSTA [Concomitant]
     Route: 048
     Dates: start: 20091023

REACTIONS (1)
  - ARTHRITIS [None]
